FAERS Safety Report 4272654-4 (Version None)
Quarter: 2004Q1

REPORT INFORMATION
  Report Type: 
  Country: None (occurrence: None)
  Receive Date: 20040115
  Receipt Date: 20040115
  Transmission Date: 20041129
  Serious: Yes (Hospitalization)
  Sender: FDA-Public Use
  Company Number: None

PATIENT
  Sex: Male
  Weight: 82.6 kg

DRUGS (9)
  1. THALIDOMIDE [Suspect]
     Indication: NON-SMALL CELL LUNG CANCER
     Dosage: 50 MG PO QHS
     Route: 048
     Dates: start: 20040107, end: 20040113
  2. VINORELBINE [Suspect]
     Indication: NON-SMALL CELL LUNG CANCER
     Dosage: 5 MG/M2 Q M-W-F
     Dates: start: 20040107, end: 20040112
  3. HYDROCHLOROTHIAZIDE [Concomitant]
  4. PROTONIX [Concomitant]
  5. DULCOLAX [Concomitant]
  6. TOPAMAX [Concomitant]
  7. COZAAR [Concomitant]
  8. IRON [Concomitant]
  9. HUMULIN 70/30 [Concomitant]

REACTIONS (1)
  - PULMONARY EMBOLISM [None]
